FAERS Safety Report 4758570-X (Version None)
Quarter: 2005Q3

REPORT INFORMATION
  Report Type: 
  Country: None (occurrence: None)
  Receive Date: 20050826
  Receipt Date: 20050628
  Transmission Date: 20060218
  Serious: Yes (Other)
  Sender: FDA-Public Use
  Company Number: ENTC2005-0179

PATIENT
  Age: 87 Year
  Sex: Male

DRUGS (14)
  1. STALEVO 100 [Suspect]
     Indication: PARKINSON'S DISEASE
     Dosage: 100/25/200 MG TDS
     Dates: start: 20050603, end: 20050627
  2. COVERSYL PLUS [Suspect]
     Dosage: 4 MG/1.25 MG MANE
  3. SINEMET [Concomitant]
  4. CARTIA XT [Concomitant]
  5. CELEBREX [Concomitant]
  6. CELESTONE TAB [Concomitant]
  7. COSOPT [Concomitant]
  8. FML LIQUIFILM [Concomitant]
  9. IMDUR [Concomitant]
  10. ISOPTIN SR [Concomitant]
  11. LIPITOR [Concomitant]
  12. MIXTARD 30/70 ^NOVO NORDISK^ [Concomitant]
  13. PLAVIX [Concomitant]
  14. SOMAC [Concomitant]

REACTIONS (3)
  - ANGIONEUROTIC OEDEMA [None]
  - COORDINATION ABNORMAL [None]
  - DRUG HYPERSENSITIVITY [None]
